FAERS Safety Report 12314005 (Version 8)
Quarter: 2018Q1

REPORT INFORMATION
  Report Type: Spontaneous
  Country: US (occurrence: US)
  Receive Date: 20160428
  Receipt Date: 20180227
  Transmission Date: 20180508
  Serious: Yes (Other)
  Sender: FDA-Public Use
  Company Number: US-PFIZER INC-2016233785

PATIENT
  Age: 57 Year
  Sex: Female
  Weight: 55.34 kg

DRUGS (20)
  1. SPIRIVA RESPIMAT [Concomitant]
     Active Substance: TIOTROPIUM BROMIDE
     Dosage: 5 UG, 1X/DAY (2.5 MCG INHALE 2 INHALATION AS INSTRUCTED)
     Route: 055
  2. SPIRONOLACTONE. [Concomitant]
     Active Substance: SPIRONOLACTONE
     Indication: FLUID RETENTION
     Dosage: 50 MG, 1X/DAY
     Route: 048
  3. SPIRIVA [Suspect]
     Active Substance: TIOTROPIUM BROMIDE MONOHYDRATE
     Dosage: UNK
  4. LASIX [Concomitant]
     Active Substance: FUROSEMIDE
     Dosage: 40 MG, 1X/DAY
     Route: 048
  5. FUROSEMIDE. [Concomitant]
     Active Substance: FUROSEMIDE
     Indication: FLUID RETENTION
     Dosage: 40 MG, 1X/DAY
     Route: 048
  6. SYNTHROID [Concomitant]
     Active Substance: LEVOTHYROXINE SODIUM
     Indication: THYROID DISORDER
     Dosage: 100 UG, 1X/DAY
     Route: 048
  7. ALBUTEROL SULFATE. [Concomitant]
     Active Substance: ALBUTEROL SULFATE
     Indication: WHEEZING
     Dosage: 2.5 MG, AS NEEDED (EVERY 2 HOURS)
     Route: 055
  8. REVATIO [Suspect]
     Active Substance: SILDENAFIL CITRATE
     Dosage: 80 MG, 2X/DAY (TAKING FOUR TABLETS TWICE A DAY)
     Route: 048
  9. ALDACTONE [Suspect]
     Active Substance: SPIRONOLACTONE
     Dosage: 50 MG, 1X/DAY
     Route: 048
  10. PREDNISONE. [Concomitant]
     Active Substance: PREDNISONE
     Indication: SLEEP DISORDER
     Dosage: 10 MG, UNK
  11. DESYREL [Concomitant]
     Active Substance: TRAZODONE HYDROCHLORIDE
     Dosage: 100 MG, 1X/DAY (BED TIME)
     Route: 048
  12. REVATIO [Suspect]
     Active Substance: SILDENAFIL CITRATE
     Indication: PULMONARY ARTERIAL HYPERTENSION
     Dosage: 80 MG, 3X/DAY (FOUR TABLETS THREE TIMES A DAY)
     Route: 048
     Dates: start: 20071009
  13. ALBUTEROL SULFATE. [Concomitant]
     Active Substance: ALBUTEROL SULFATE
     Indication: DYSPNOEA
  14. VELETRI [Concomitant]
     Active Substance: EPOPROSTENOL
     Dosage: 77.5MG/KG/MIN, UNK
  15. REVATIO [Suspect]
     Active Substance: SILDENAFIL CITRATE
     Dosage: 80 MG, 1X/DAY (FOUR TABLETS ONCE A DAY)
     Route: 048
  16. FLONASE [Concomitant]
     Active Substance: FLUTICASONE PROPIONATE
     Dosage: 50 UG, 1X/DAY (USE 1-2 SPRAYS IN EACH NOSTRIL)
     Route: 045
  17. OXYGEN. [Concomitant]
     Active Substance: OXYGEN
     Indication: PULMONARY HYPERTENSION
     Dosage: O2 AT 2 LPM AT REST AND 3 LPM WALKING; SAO2 86% ON ROOM AIR AT REST
  18. VELETRI [Concomitant]
     Active Substance: EPOPROSTENOL
     Indication: PULMONARY HYPERTENSION
     Dosage: 84 NG/KG/MIN; 75,000 NG/ML CONCENTRATION; 56KG DOSING WT; 90 ML/24HRS PUMP RATE)
     Dates: start: 200211
  19. NICODERM CQ [Concomitant]
     Active Substance: NICOTINE
     Dosage: 21 MG, 1X/DAY [21MG/24 HR; APPLY 1 PATCH AS DIRECTED ONCE DAILY]
  20. LEVOTHYROXINE. [Concomitant]
     Active Substance: LEVOTHYROXINE
     Indication: THYROID DISORDER
     Dosage: 100 UG, 1X/DAY
     Route: 048

REACTIONS (11)
  - Malaise [Recovering/Resolving]
  - Hypoacusis [Not Recovered/Not Resolved]
  - Sinus disorder [Unknown]
  - Cough [Recovering/Resolving]
  - Nasopharyngitis [Not Recovered/Not Resolved]
  - Rhinorrhoea [Unknown]
  - Middle ear effusion [Unknown]
  - Blood sodium decreased [Unknown]
  - Sneezing [Unknown]
  - Ear discomfort [Unknown]
  - Ear canal erythema [Unknown]

NARRATIVE: CASE EVENT DATE: 201712
